FAERS Safety Report 6127258-5 (Version None)
Quarter: 2009Q1

REPORT INFORMATION
  Report Type: 
  Country: None (occurrence: None)
  Receive Date: 20090319
  Receipt Date: 20090305
  Transmission Date: 20090719
  Serious: Yes (Hospitalization)
  Sender: FDA-Public Use
  Company Number: 02100-JPN-07-0638

PATIENT
  Age: 54 Year
  Sex: Female

DRUGS (14)
  1. PLETAL [Suspect]
     Indication: CEREBRAL ARTERY STENOSIS
     Dosage: 100 MG, BID
     Route: 048
     Dates: start: 20070308, end: 20071004
  2. CILOSTAZOL [Suspect]
     Indication: PROPHYLAXIS
     Dosage: 200 MG, DAILY DOSE
     Route: 048
     Dates: start: 20071004, end: 20080724
  3. CILOSTAZOL [Suspect]
     Indication: THROMBOSIS
     Dosage: 200 MG, DAILY DOSE
     Route: 048
     Dates: start: 20071004, end: 20080724
  4. CILOSTAZOL [Suspect]
     Indication: PROPHYLAXIS
     Dosage: 200 MG, DAILY DOSE
     Route: 048
     Dates: start: 20081024
  5. CILOSTAZOL [Suspect]
     Indication: THROMBOSIS
     Dosage: 200 MG, DAILY DOSE
     Route: 048
     Dates: start: 20081024
  6. ASPIRIN [Concomitant]
  7. ANYTAL (MADE BY AHN-GOOK) (ANYTAL (MADE BY AHN-GOOK) [Concomitant]
  8. PROPRANOLOL HYDROCHLORIDE [Concomitant]
  9. SERTRALINE HYDROCHLORIDE [Concomitant]
  10. CLOPIDOGREL [Concomitant]
  11. DIAZEPAM [Concomitant]
  12. ATORVASTATIN CALCIUM [Concomitant]
  13. ACECLOFENAC (ACECLOFENAC) [Concomitant]
  14. ACETAMINOPHEN [Concomitant]

REACTIONS (9)
  - BACK PAIN [None]
  - CEREBRAL INFARCTION [None]
  - GASTRITIS EROSIVE [None]
  - HYPERLIPIDAEMIA [None]
  - INGROWING NAIL [None]
  - NASAL CONGESTION [None]
  - SELF-MEDICATION [None]
  - SNEEZING [None]
  - VESTIBULAR NEURONITIS [None]
